FAERS Safety Report 25327540 (Version 2)
Quarter: 2025Q2

REPORT INFORMATION
  Report Type: Spontaneous
  Country: CA (occurrence: CA)
  Receive Date: 20250517
  Receipt Date: 20250524
  Transmission Date: 20250716
  Serious: Yes (Hospitalization, Other)
  Sender: CELLTRION
  Company Number: CA-CELLTRION INC.-2025CA014512

PATIENT

DRUGS (23)
  1. RITUXIMAB [Suspect]
     Active Substance: RITUXIMAB
     Indication: Pemphigoid
     Route: 042
  2. RITUXIMAB [Suspect]
     Active Substance: RITUXIMAB
     Route: 042
  3. RITUXIMAB [Suspect]
     Active Substance: RITUXIMAB
     Route: 042
  4. PREDNISONE [Suspect]
     Active Substance: PREDNISONE
     Indication: Pemphigoid
     Route: 065
  5. PREDNISONE [Suspect]
     Active Substance: PREDNISONE
     Route: 065
  6. PREDNISONE [Suspect]
     Active Substance: PREDNISONE
     Route: 065
  7. PREDNISONE [Suspect]
     Active Substance: PREDNISONE
     Route: 065
  8. PREDNISONE [Suspect]
     Active Substance: PREDNISONE
     Route: 065
  9. PREDNISONE [Suspect]
     Active Substance: PREDNISONE
     Route: 065
  10. PREDNISONE [Suspect]
     Active Substance: PREDNISONE
     Indication: Pemphigoid
     Route: 065
  11. PREDNISONE [Suspect]
     Active Substance: PREDNISONE
     Route: 042
  12. PREDNISONE [Suspect]
     Active Substance: PREDNISONE
     Route: 042
  13. PREDNISONE [Suspect]
     Active Substance: PREDNISONE
     Route: 042
  14. PREDNISONE [Suspect]
     Active Substance: PREDNISONE
     Route: 042
  15. PREDNISONE [Suspect]
     Active Substance: PREDNISONE
     Route: 042
  16. PREDNISONE [Suspect]
     Active Substance: PREDNISONE
     Route: 065
  17. PREDNISONE [Suspect]
     Active Substance: PREDNISONE
     Route: 065
  18. SOLU-MEDROL [Suspect]
     Active Substance: METHYLPREDNISOLONE SODIUM SUCCINATE
     Indication: Pemphigoid
     Route: 042
  19. METHYLPREDNISOLONE SODIUM SUCCINATE [Suspect]
     Active Substance: METHYLPREDNISOLONE SODIUM SUCCINATE
     Indication: Pemphigoid
     Route: 042
  20. METHYLPREDNISOLONE SODIUM SUCCINATE [Suspect]
     Active Substance: METHYLPREDNISOLONE SODIUM SUCCINATE
     Route: 042
  21. DOXYCYCLINE [Concomitant]
     Active Substance: DOXYCYCLINE
     Indication: Pemphigoid
     Route: 065
  22. IMMUNE GLOBULIN NOS [Concomitant]
     Active Substance: IMMUNE GLOBULIN NOS
     Indication: Pemphigoid
     Route: 065
  23. NIACINAMIDE [Concomitant]
     Active Substance: NIACINAMIDE
     Indication: Pemphigoid
     Route: 065

REACTIONS (8)
  - Pemphigoid [Recovering/Resolving]
  - Stress [Recovering/Resolving]
  - Postoperative wound infection [Recovering/Resolving]
  - Staphylococcal bacteraemia [Recovering/Resolving]
  - Staphylococcal abscess [Unknown]
  - Treatment failure [Recovering/Resolving]
  - Off label use [Recovering/Resolving]
  - Intentional product use issue [Unknown]
